FAERS Safety Report 5659142-5 (Version None)
Quarter: 2008Q1

REPORT INFORMATION
  Report Type: 
  Country: None (occurrence: None)
  Receive Date: 20080311
  Receipt Date: 20070605
  Transmission Date: 20080703
  Serious: No
  Sender: FDA-Public Use
  Company Number: US-BAYER-200711731BCC

PATIENT
  Sex: Female
  Weight: 57 kg

DRUGS (6)
  1. ALEVE [Suspect]
     Indication: TENDONITIS
     Dosage: TOTAL DAILY DOSE: 880 MG  UNIT DOSE: 220 MG
     Route: 048
  2. ALEVE [Suspect]
     Dosage: AS USED: 220/440 MG  UNIT DOSE: 220 MG
     Route: 048
  3. ALEVE [Suspect]
     Dosage: TOTAL DAILY DOSE: 440 MG  UNIT DOSE: 220 MG
     Route: 048
  4. BLOOD PRESSURE MEDICATION [Concomitant]
  5. THYROID MEDICINE [Concomitant]
  6. CHOLESTEROL PILLS [Concomitant]

REACTIONS (1)
  - NO ADVERSE EVENT [None]
